FAERS Safety Report 8414268-8 (Version None)
Quarter: 2012Q2

REPORT INFORMATION
  Report Type: 
  Country: None (occurrence: None)
  Receive Date: 20120605
  Receipt Date: 20120531
  Transmission Date: 20120825
  Serious: Yes (Life-Threatening, Hospitalization, Disabling, Other)
  Sender: FDA-Public Use
  Company Number: CA-JNJFOC-20120205675

PATIENT
  Sex: Female
  Weight: 63.5 kg

DRUGS (3)
  1. CLONAZEPAM [Concomitant]
     Indication: PRODUCT USED FOR UNKNOWN INDICATION
     Dosage: 0.5 (UNIT UNSPECIFIED (S.I.C))
     Route: 065
     Dates: start: 20110901
  2. CONCERTA [Suspect]
     Indication: PSYCHOTIC DISORDER
     Dosage: 50 (UNIT UNSPECIFIED)
     Route: 048
     Dates: start: 20110901
  3. RISPERDAL CONSTA [Suspect]
     Indication: PSYCHOTIC DISORDER
     Route: 030

REACTIONS (2)
  - HODGKIN'S DISEASE [None]
  - INAPPROPRIATE SCHEDULE OF DRUG ADMINISTRATION [None]
